FAERS Safety Report 6818838-X (Version None)
Quarter: 2010Q2

REPORT INFORMATION
  Report Type: 
  Country: None (occurrence: None)
  Receive Date: 20100630
  Receipt Date: 20100615
  Transmission Date: 20101027
  Serious: Yes (Other)
  Sender: FDA-Public Use
  Company Number: 2010066499

PATIENT
  Age: 79 Year
  Sex: Male

DRUGS (1)
  1. FRAGMIN [Suspect]
     Dosage: 100000 IU
     Dates: start: 20100113, end: 20100116

REACTIONS (3)
  - ACCIDENTAL OVERDOSE [None]
  - CONTRAINDICATION TO MEDICAL TREATMENT [None]
  - HAEMORRHAGE INTRACRANIAL [None]
